FAERS Safety Report 11029493 (Version 1)
Quarter: 2015Q2

REPORT INFORMATION
  Report Type: Spontaneous
  Country: US (occurrence: None)
  Receive Date: 20150413
  Receipt Date: 20150413
  Transmission Date: 20150821
  Serious: Yes (Disabling)
  Sender: FDA-Public Use
  Company Number: None

PATIENT
  Age: 55 Year
  Sex: Male
  Weight: 106.6 kg

DRUGS (6)
  1. COPAXONE [Suspect]
     Active Substance: GLATIRAMER ACETATE
     Indication: MULTIPLE SCLEROSIS
     Dosage: SYRINGE?ROTATE INJECTION SITES
     Dates: start: 20150330, end: 20150403
  2. BACLOFEN. [Concomitant]
     Active Substance: BACLOFEN
  3. NORTRIPTYLINE HCL [Concomitant]
     Active Substance: NORTRIPTYLINE HYDROCHLORIDE
  4. HYDROCODONE BITARTRATE AND ACETAMINOPHEN [Concomitant]
     Active Substance: ACETAMINOPHEN\HYDROCODONE BITARTRATE
  5. OMEPRAZOLE. [Concomitant]
     Active Substance: OMEPRAZOLE
  6. VITAMIN B [Concomitant]
     Active Substance: VITAMIN B

REACTIONS (9)
  - Back pain [None]
  - Chills [None]
  - Vomiting [None]
  - Tremor [None]
  - Nausea [None]
  - Diarrhoea [None]
  - Arthralgia [None]
  - Pain in extremity [None]
  - Headache [None]

NARRATIVE: CASE EVENT DATE: 20150403
